FAERS Safety Report 10073587 (Version 1)
Quarter: 2014Q2

REPORT INFORMATION
  Report Type: Spontaneous
  Country: US (occurrence: US)
  Receive Date: 20140411
  Receipt Date: 20140411
  Transmission Date: 20141212
  Serious: Yes (Hospitalization)
  Sender: FDA-Public Use
  Company Number: US-MPIJNJ-2014MPI001048

PATIENT
  Sex: 0

DRUGS (2)
  1. VELCADE [Suspect]
     Indication: MANTLE CELL LYMPHOMA REFRACTORY
     Dosage: 1.3 MG/M2, ON DAYS 1, 4, 8 AND 11 OF A 21 DAY TREATMENT CYCLE
     Route: 042
  2. OBATOCLAX [Suspect]
     Indication: MANTLE CELL LYMPHOMA REFRACTORY
     Dosage: 45 MG, ON DAYS 1, 4, 8 AND 11 OF A 21 DAY TREATMENT CYCLE
     Route: 042

REACTIONS (2)
  - Urinary tract infection [Unknown]
  - Enterocolitis [Unknown]
